FAERS Safety Report 7767441-6 (Version None)
Quarter: 2011Q3

REPORT INFORMATION
  Report Type: 
  Country: None (occurrence: None)
  Receive Date: 20110922
  Receipt Date: 20110406
  Transmission Date: 20111222
  Serious: No
  Sender: FDA-Public Use
  Company Number: US-ASTRAZENECA-2009SE20967

PATIENT
  Age: 46 Year
  Sex: Female
  Weight: 57.6 kg

DRUGS (9)
  1. SEROQUEL [Suspect]
     Route: 048
     Dates: end: 20110224
  2. MAXZIDE [Concomitant]
     Indication: HYPERTENSION
  3. LEVOTHYROXINE SODIUM [Concomitant]
     Indication: THYROID DISORDER
  4. SEROQUEL [Suspect]
     Indication: INSOMNIA
     Route: 048
     Dates: start: 20050101
  5. SEROQUEL [Suspect]
     Route: 048
     Dates: start: 20060101, end: 20091001
  6. SEROQUEL [Suspect]
     Route: 048
     Dates: end: 20110224
  7. TRAZODONE HYDROCHLORIDE [Suspect]
     Dates: start: 20091006
  8. SEROQUEL [Suspect]
     Indication: BIPOLAR DISORDER
     Route: 048
     Dates: start: 20050101
  9. SEROQUEL [Suspect]
     Route: 048
     Dates: start: 20060101, end: 20091001

REACTIONS (14)
  - SINUS HEADACHE [None]
  - DYSGEUSIA [None]
  - OROPHARYNGEAL PAIN [None]
  - FEELING ABNORMAL [None]
  - HYPERSENSITIVITY [None]
  - NASAL CONGESTION [None]
  - INSOMNIA [None]
  - TACHYPHRENIA [None]
  - DRUG DOSE OMISSION [None]
  - SNEEZING [None]
  - FATIGUE [None]
  - DRUG DEPENDENCE [None]
  - SINUS CONGESTION [None]
  - DRUG WITHDRAWAL SYNDROME [None]
